FAERS Safety Report 7220531-9 (Version None)
Quarter: 2011Q1

REPORT INFORMATION
  Report Type: 
  Country: None (occurrence: None)
  Receive Date: 20110111
  Receipt Date: 20110110
  Transmission Date: 20110831
  Serious: Yes (Other)
  Sender: FDA-Public Use
  Company Number: US-ABBOTT-10P-163-0693368-00

PATIENT
  Sex: Male
  Weight: 79.45 kg

DRUGS (9)
  1. SIMCOR [Suspect]
     Route: 048
     Dates: start: 20100101
  2. LISINOPRIL [Concomitant]
     Indication: HYPERTENSION
     Route: 048
  3. ASPIRIN [Concomitant]
     Indication: PRODUCT USED FOR UNKNOWN INDICATION
     Route: 048
  4. DILTIAZEM [Concomitant]
     Indication: HYPERTENSION
     Route: 048
  5. TRICOR [Concomitant]
     Indication: PRODUCT USED FOR UNKNOWN INDICATION
     Route: 048
     Dates: start: 20100901
  6. SIMCOR [Suspect]
     Indication: DYSLIPIDAEMIA
     Dosage: 1000/20
     Route: 048
     Dates: start: 20090101
  7. NIASPAN [Suspect]
     Indication: DYSLIPIDAEMIA
     Route: 048
  8. INDOMETHACIN [Concomitant]
     Indication: GOUT
     Dosage: AS NEEDED
     Route: 048
  9. ALLOPURINOL [Concomitant]
     Indication: GOUT
     Route: 048

REACTIONS (6)
  - ARTHRALGIA [None]
  - MOBILITY DECREASED [None]
  - HERPES ZOSTER [None]
  - PAIN IN EXTREMITY [None]
  - FLUSHING [None]
  - GOUT [None]
